FAERS Safety Report 9677242 (Version 3)
Quarter: 2014Q1

REPORT INFORMATION
  Report Type: Other
  Country: GB (occurrence: GB)
  Receive Date: 20131108
  Receipt Date: 20140124
  Transmission Date: 20141002
  Serious: Yes (Life-Threatening, Hospitalization, Other)
  Sender: FDA-Public Use
  Company Number: GB-LUPIN PHARMACEUTICALS INC.-E2B_00001401

PATIENT
  Age: 8 Year
  Sex: Male
  Weight: 34.5 kg

DRUGS (4)
  1. CEFTRIAXONE [Suspect]
     Indication: MENINGITIS
     Route: 042
     Dates: start: 20131014, end: 20131016
  2. PARACETAMOL [Concomitant]
     Indication: PYREXIA
  3. IBUPROFEN [Concomitant]
     Indication: PRODUCT USED FOR UNKNOWN INDICATION
     Route: 065
  4. IBUPROFEN [Concomitant]
     Indication: PYREXIA

REACTIONS (3)
  - Renal failure acute [Recovered/Resolved]
  - Urine output decreased [Unknown]
  - Blood creatinine abnormal [Recovering/Resolving]
